FAERS Safety Report 10869625 (Version 1)
Quarter: 2015Q1

REPORT INFORMATION
  Report Type: Spontaneous
  Country: US (occurrence: US)
  Receive Date: 20150226
  Receipt Date: 20150226
  Transmission Date: 20150721
  Serious: No
  Sender: FDA-Public Use
  Company Number: US-GLAXOSMITHKLINE-US2015012609

PATIENT
  Age: 71 Year
  Sex: Male

DRUGS (3)
  1. ULORIC [Concomitant]
     Active Substance: FEBUXOSTAT
  2. COREG [Suspect]
     Active Substance: CARVEDILOL
     Dosage: 25 MG, QD
     Route: 048
  3. COREG [Suspect]
     Active Substance: CARVEDILOL
     Indication: VASCULAR GRAFT
     Dosage: 25 MG, BID
     Route: 048
     Dates: start: 200105

REACTIONS (5)
  - Dizziness [Recovering/Resolving]
  - Fall [Recovering/Resolving]
  - Joint injury [Recovering/Resolving]
  - Limb injury [Recovering/Resolving]
  - Fatigue [Recovering/Resolving]

NARRATIVE: CASE EVENT DATE: 200105
